FAERS Safety Report 8451124-3 (Version None)
Quarter: 2012Q2

REPORT INFORMATION
  Report Type: 
  Country: None (occurrence: None)
  Receive Date: 20120620
  Receipt Date: 20120607
  Transmission Date: 20120825
  Serious: Yes (Other)
  Sender: FDA-Public Use
  Company Number: JP-ROCHE-1077932

PATIENT
  Age: 3 Year
  Sex: Male
  Weight: 11.5 kg

DRUGS (5)
  1. TAMIFLU [Suspect]
     Indication: INFLUENZA
     Route: 048
     Dates: start: 20120528, end: 20120528
  2. ASVERIN [Concomitant]
     Dosage: DOSAGE IS UNCERTAIN.
     Route: 048
  3. LEFTOSE [Concomitant]
     Dosage: DOSAGE IS UNCERTAIN.
     Route: 048
  4. HOKUNALIN [Concomitant]
     Dosage: DOSAGE IS UNCERTAIN.
     Route: 062
  5. MUCODYNE [Concomitant]
     Dosage: DOSAGE IS UNCERTAIN.
     Route: 048

REACTIONS (1)
  - ABNORMAL BEHAVIOUR [None]
